FAERS Safety Report 5927814-0 (Version None)
Quarter: 2008Q4

REPORT INFORMATION
  Report Type: 
  Country: None (occurrence: None)
  Receive Date: 20081023
  Receipt Date: 20070529
  Transmission Date: 20090506
  Serious: Yes (Hospitalization)
  Sender: FDA-Public Use
  Company Number: US-ASTRAZENECA-2008UW22918

PATIENT
  Age: 44 Year
  Sex: Male
  Weight: 71.7 kg

DRUGS (28)
  1. SEROQUEL [Suspect]
     Indication: INSOMNIA
     Dosage: 100 MG, 150 MG, 200 MG, 300 MG AND 600 MG AT BEDTIME
     Route: 048
     Dates: start: 20040210
  2. ZYPREXA [Concomitant]
  3. RISPERDAL [Concomitant]
  4. VIREAD [Concomitant]
  5. EPIVIR [Concomitant]
  6. ZIAGEN [Concomitant]
  7. GLUCOTROL [Concomitant]
  8. LOPRESSOR [Concomitant]
  9. GEMFIBROZIL [Concomitant]
  10. ALBUTEROL [Concomitant]
  11. EPZICOM [Concomitant]
  12. KLONOPIN [Concomitant]
  13. GLIPIZIDE [Concomitant]
  14. TRILEPTAL [Concomitant]
  15. NASONEX [Concomitant]
  16. MULTI-VITAMIN [Concomitant]
  17. TYLENOL [Concomitant]
  18. MYLANTA [Concomitant]
  19. MILK OF MAGNESIA [Concomitant]
  20. AMBIEN [Concomitant]
  21. VISTARIL [Concomitant]
  22. LITHOBID [Concomitant]
  23. LOMOTIL [Concomitant]
  24. AMOXICILLIN [Concomitant]
  25. NICODERM [Concomitant]
  26. ATROVENT [Concomitant]
  27. NYSTATIN [Concomitant]
  28. KALETRA [Concomitant]

REACTIONS (3)
  - BIPOLAR I DISORDER [None]
  - DRUG ABUSE [None]
  - HAEMATURIA [None]
